FAERS Safety Report 5749474-4 (Version None)
Quarter: 2008Q2

REPORT INFORMATION
  Report Type: 
  Country: None (occurrence: None)
  Receive Date: 20080527
  Receipt Date: 20080513
  Transmission Date: 20081010
  Serious: Yes (Other)
  Sender: FDA-Public Use
  Company Number: A0729527A

PATIENT
  Age: 25 Year
  Sex: Male

DRUGS (2)
  1. PAXIL [Suspect]
  2. ALCOHOL [Suspect]

REACTIONS (2)
  - AGGRESSION [None]
  - WITHDRAWAL SYNDROME [None]
